FAERS Safety Report 14160317 (Version 1)
Quarter: 2017Q4

REPORT INFORMATION
  Report Type: Report from Study
  Country: None (occurrence: US)
  Receive Date: 20171104
  Receipt Date: 20171104
  Transmission Date: 20180321
  Serious: Yes (Hospitalization, Other)
  Sender: FDA-Public Use
  Company Number: US-ABBVIE-17K-163-2130659-00

PATIENT
  Age: 63 Year
  Sex: Female
  Weight: 95.79 kg

DRUGS (7)
  1. PANTOPRAZOLE [Concomitant]
     Active Substance: PANTOPRAZOLE
     Indication: GASTROOESOPHAGEAL REFLUX DISEASE
  2. BYSTOLIC [Concomitant]
     Active Substance: NEBIVOLOL HYDROCHLORIDE
     Indication: HYPERTENSION
  3. ALBUTEROL INHALER [Concomitant]
     Active Substance: ALBUTEROL
     Indication: ASTHMA
  4. HUMIRA [Suspect]
     Active Substance: ADALIMUMAB
     Route: 058
     Dates: start: 201704
  5. HYDRALAZINE [Concomitant]
     Active Substance: HYDRALAZINE HYDROCHLORIDE
     Indication: HYPERTENSION
  6. HUMIRA [Suspect]
     Active Substance: ADALIMUMAB
     Indication: PSORIASIS
     Route: 058
     Dates: start: 2014, end: 2016
  7. SPIRONOLACTONE. [Concomitant]
     Active Substance: SPIRONOLACTONE
     Indication: HYPERTENSION

REACTIONS (15)
  - Pituitary tumour [Recovered/Resolved with Sequelae]
  - Productive cough [Unknown]
  - Asthma [Recovering/Resolving]
  - Concussion [Recovered/Resolved]
  - Amnesia [Not Recovered/Not Resolved]
  - Brain neoplasm [Unknown]
  - Haemoptysis [Unknown]
  - Upper respiratory tract infection [Recovering/Resolving]
  - Hypothyroidism [Not Recovered/Not Resolved]
  - Nephrolithiasis [Recovered/Resolved]
  - Large intestine polyp [Recovered/Resolved]
  - Malignant polyp [Recovered/Resolved]
  - Colon cancer [Unknown]
  - Thyroid mass [Not Recovered/Not Resolved]
  - Type 2 diabetes mellitus [Not Recovered/Not Resolved]

NARRATIVE: CASE EVENT DATE: 201510
